FAERS Safety Report 19660558 (Version 1)
Quarter: 2021Q3

REPORT INFORMATION
  Report Type: Spontaneous
  Country: US (occurrence: US)
  Receive Date: 20210805
  Receipt Date: 20210805
  Transmission Date: 20211014
  Serious: Yes (Death)
  Sender: FDA-Public Use
  Company Number: US-CELGENEUS-USA-20210800495

PATIENT

DRUGS (4)
  1. GM?CSF [Suspect]
     Active Substance: GRANULOCYTE-MACROPHAGE COLONY-STIMULATING FACTOR
     Indication: ACUTE MYELOID LEUKAEMIA
     Route: 058
  2. AZACITIDINE. [Suspect]
     Active Substance: AZACITIDINE
     Indication: ACUTE MYELOID LEUKAEMIA
     Route: 041
  3. GM?CSF [Suspect]
     Active Substance: GRANULOCYTE-MACROPHAGE COLONY-STIMULATING FACTOR
     Indication: BONE MARROW TRANSPLANT
  4. AZACITIDINE. [Suspect]
     Active Substance: AZACITIDINE
     Indication: BONE MARROW TRANSPLANT
     Route: 041

REACTIONS (2)
  - Graft versus host disease in lung [Fatal]
  - Graft versus host disease in skin [Fatal]
